FAERS Safety Report 5831083-X (Version None)
Quarter: 2008Q3

REPORT INFORMATION
  Report Type: 
  Country: None (occurrence: None)
  Receive Date: 20080801
  Receipt Date: 20080401
  Transmission Date: 20090109
  Serious: No
  Sender: FDA-Public Use
  Company Number: US-BRISTOL-MYERS SQUIBB COMPANY-14133136

PATIENT
  Age: 75 Year
  Sex: Female

DRUGS (6)
  1. COUMADIN [Suspect]
  2. WARFARIN SODIUM [Suspect]
     Dosage: 10 MG 4 DAYS A WEEK
  3. FLECAINIDE ACETATE [Concomitant]
  4. ATENOLOL [Concomitant]
  5. LIPITOR [Concomitant]
  6. FOSAMAX [Concomitant]

REACTIONS (1)
  - ALOPECIA [None]
